FAERS Safety Report 14074089 (Version 1)
Quarter: 2017Q4

REPORT INFORMATION
  Report Type: Spontaneous
  Country: JP (occurrence: JP)
  Receive Date: 20171011
  Receipt Date: 20171011
  Transmission Date: 20180321
  Serious: Yes (Hospitalization)
  Sender: FDA-Public Use
  Company Number: JP-PFIZER INC-2017368666

PATIENT
  Age: 34 Year
  Sex: Female

DRUGS (4)
  1. DEPAS [Suspect]
     Active Substance: ETIZOLAM
     Dosage: 32 DF, SINGLE
     Route: 048
     Dates: start: 20170824, end: 20170824
  2. MYSLEE [Suspect]
     Active Substance: ZOLPIDEM TARTRATE
     Dosage: 48 DF, SINGLE
     Route: 048
     Dates: start: 20170824, end: 20170824
  3. LUNESTA [Suspect]
     Active Substance: ESZOPICLONE
     Indication: INSOMNIA
     Dosage: 21 MG, SINGLE (21 TABLETS)
     Route: 048
     Dates: start: 20170824, end: 20170824
  4. SOLANAX [Suspect]
     Active Substance: ALPRAZOLAM
     Indication: INSOMNIA
     Dosage: 4 MG, SINGLE (10 TABLETS)
     Route: 048
     Dates: start: 20170424, end: 20170824

REACTIONS (4)
  - Product use in unapproved indication [Recovered/Resolved]
  - Overdose [Recovered/Resolved]
  - Suicide attempt [Recovered/Resolved]
  - Hypotension [Unknown]

NARRATIVE: CASE EVENT DATE: 20170824
